FAERS Safety Report 23665605 (Version 1)
Quarter: 2024Q1

REPORT INFORMATION
  Report Type: Spontaneous
  Country: US (occurrence: US)
  Receive Date: 20240323
  Receipt Date: 20240323
  Transmission Date: 20240410
  Serious: Yes (Death, Other)
  Sender: FDA-Public Use
  Company Number: US-AMGEN-USASP2024055646

PATIENT

DRUGS (1)
  1. RITUXIMAB [Suspect]
     Active Substance: RITUXIMAB
     Indication: Still^s disease
     Dosage: UNK
     Route: 065

REACTIONS (8)
  - Haemophagocytic lymphohistiocytosis [Fatal]
  - Sepsis [Fatal]
  - Acute kidney injury [Fatal]
  - Acute respiratory distress syndrome [Fatal]
  - Pneumonia cytomegaloviral [Fatal]
  - Multiple organ dysfunction syndrome [Fatal]
  - Still^s disease [Unknown]
  - Off label use [Unknown]
